FAERS Safety Report 7693251-4 (Version None)
Quarter: 2011Q3

REPORT INFORMATION
  Report Type: 
  Country: None (occurrence: None)
  Receive Date: 20110819
  Receipt Date: 20110804
  Transmission Date: 20111222
  Serious: Yes (Other)
  Sender: FDA-Public Use
  Company Number: PHHY2011JP01367

PATIENT
  Sex: Female
  Weight: 87 kg

DRUGS (7)
  1. TRICHLORMETHIAZIDE [Concomitant]
     Indication: HYPERTENSION
     Dosage: 2 MG, UNK
     Route: 048
     Dates: start: 20080422, end: 20081111
  2. ADALAT [Concomitant]
     Indication: HYPERTENSION
     Dosage: 40 MG, UNK
     Route: 048
     Dates: start: 20080422, end: 20081111
  3. PRAVASTATIN SODIUM [Concomitant]
     Dosage: 10 MG, UNK
     Route: 048
     Dates: start: 20080422
  4. DOXAZOSIN MESYLATE [Concomitant]
     Indication: HYPERTENSION
     Dosage: 4 MG, UNK
     Route: 048
     Dates: start: 20080422, end: 20081111
  5. ASPIRIN [Concomitant]
     Dosage: 100 MG, UNK
     Route: 048
     Dates: start: 20080422
  6. VALSARTAN [Suspect]
     Indication: HYPERTENSION
     Dosage: 80 MG, BID
     Route: 048
     Dates: start: 20080422, end: 20081111
  7. ALFAROL [Concomitant]
     Dosage: 2 MICROGRAM
     Route: 048
     Dates: start: 20080422

REACTIONS (4)
  - CARDIAC FAILURE [None]
  - BLOOD PRESSURE INCREASED [None]
  - ATRIAL FIBRILLATION [None]
  - PALPITATIONS [None]
